FAERS Safety Report 4900396-8 (Version None)
Quarter: 2006Q1

REPORT INFORMATION
  Report Type: 
  Country: None (occurrence: None)
  Receive Date: 20060203
  Receipt Date: 20060125
  Transmission Date: 20060701
  Serious: Yes (Hospitalization)
  Sender: FDA-Public Use
  Company Number: US-JNJFOC-20060106232

PATIENT
  Sex: Female
  Weight: 64.41 kg

DRUGS (4)
  1. DURAGESIC-100 [Suspect]
     Route: 062
  2. NEURONTIN [Concomitant]
     Route: 048
  3. SINGULAIR [Concomitant]
     Route: 048
  4. PAXIL [Concomitant]
     Indication: DEPRESSION
     Route: 048

REACTIONS (4)
  - FLUID RETENTION [None]
  - HYPERTENSION [None]
  - HYPOAESTHESIA [None]
  - HYPOTHYROIDISM [None]
